FAERS Safety Report 25145056 (Version 2)
Quarter: 2025Q2

REPORT INFORMATION
  Report Type: Spontaneous
  Country: US (occurrence: US)
  Receive Date: 20250401
  Receipt Date: 20250603
  Transmission Date: 20250716
  Serious: No
  Sender: FRESENIUS KABI
  Company Number: US-FreseniusKabi-FK202504868

PATIENT
  Age: 47 Year
  Sex: Female

DRUGS (2)
  1. TYENNE [Suspect]
     Active Substance: TOCILIZUMAB-AAZG
     Indication: Rheumatoid arthritis
     Dates: start: 20250211
  2. TYENNE [Suspect]
     Active Substance: TOCILIZUMAB-AAZG
     Dates: start: 20250218

REACTIONS (1)
  - Hypersensitivity [Unknown]

NARRATIVE: CASE EVENT DATE: 20250211
